FAERS Safety Report 16208515 (Version 1)
Quarter: 2019Q2

REPORT INFORMATION
  Report Type: Spontaneous
  Country: DK (occurrence: DK)
  Receive Date: 20190417
  Receipt Date: 20190417
  Transmission Date: 20190711
  Serious: Yes (Other)
  Sender: FDA-Public Use
  Company Number: DK-ELI_LILLY_AND_COMPANY-DK201904005847

PATIENT
  Age: 44 Year
  Sex: Male

DRUGS (2)
  1. OLANZAPINE. [Suspect]
     Active Substance: OLANZAPINE
     Indication: SEDATIVE THERAPY
     Dosage: UNK UNK, UNKNOWN
     Route: 048
     Dates: start: 2017, end: 2018
  2. SEROQUEL [Suspect]
     Active Substance: QUETIAPINE FUMARATE
     Indication: MENTAL DISORDER
     Dosage: UNK, UNKNOWN
     Route: 048

REACTIONS (3)
  - Granulomatosis with polyangiitis [Unknown]
  - Infection susceptibility increased [Unknown]
  - Off label use [Unknown]
